FAERS Safety Report 17563020 (Version 1)
Quarter: 2020Q1

REPORT INFORMATION
  Report Type: Spontaneous
  Country: CH (occurrence: CH)
  Receive Date: 20200319
  Receipt Date: 20200319
  Transmission Date: 20200409
  Serious: Yes (Hospitalization, Other)
  Sender: FDA-Public Use
  Company Number: CH-AMERICAN REGENT INC-2020000669

PATIENT
  Age: 48 Year
  Sex: Female

DRUGS (15)
  1. LAXOBERON [Concomitant]
     Active Substance: SODIUM PICOSULFATE
     Indication: PRODUCT USED FOR UNKNOWN INDICATION
     Dosage: 1 DOSAGE FORMS, AS REQUIRED
     Route: 048
  2. PANTOPRAZOL MEPHA [Concomitant]
     Active Substance: PANTOPRAZOLE SODIUM
     Indication: PRODUCT USED FOR UNKNOWN INDICATION
     Dosage: 40 MILLIGRAM, 1 IN MORNING, 1 IN EVENING
     Route: 048
  3. NOVALGIN (METAMIZOLE SODIUM) [Concomitant]
     Active Substance: METAMIZOLE SODIUM
     Indication: PRODUCT USED FOR UNKNOWN INDICATION
     Dosage: 0.5 GRAM PER MILLILITRE,AS REQUIRED
     Route: 048
  4. TORASEMIDE [Concomitant]
     Active Substance: TORSEMIDE
     Indication: PRODUCT USED FOR UNKNOWN INDICATION
     Dosage: 5 MILLIGRAM, 1/2 IN MORNING, 1/2 IN AFTERNOON
     Route: 048
  5. NAPROXEN. [Concomitant]
     Active Substance: NAPROXEN
     Indication: PRODUCT USED FOR UNKNOWN INDICATION
     Dosage: 500 MILLIGRAM, AS REQUIRED
     Route: 048
  6. METOLAZON [Concomitant]
     Active Substance: METOLAZONE
     Indication: PRODUCT USED FOR UNKNOWN INDICATION
     Dosage: 2.5 MILLIGRAM,1/2 IN AFTERNOON
     Route: 048
  7. CALCIMAGON D3 [Concomitant]
     Active Substance: CALCIUM\CHOLECALCIFEROL
     Indication: PRODUCT USED FOR UNKNOWN INDICATION
     Dosage: 1 DOSAGE FORM, 1 IN MORNING
     Route: 048
  8. MAGNEGON [Concomitant]
     Indication: PRODUCT USED FOR UNKNOWN INDICATION
     Dosage: 120 MILLIGRAM, 1 IN MORNING
     Route: 048
  9. MOTILIUM [Concomitant]
     Active Substance: DOMPERIDONE
     Indication: PRODUCT USED FOR UNKNOWN INDICATION
     Dosage: 10 MILLIGRAM AS REQUIRED
     Route: 048
  10. FLATULEX                           /06269601/ [Concomitant]
     Indication: PRODUCT USED FOR UNKNOWN INDICATION
     Dosage: 42 MILLIGRAM,  AS REQUIRED
     Route: 048
  11. KAFA PLUS KOFFEIN [Concomitant]
     Indication: PRODUCT USED FOR UNKNOWN INDICATION
     Dosage: 1 DOSAGE FORM, 1 AS REQUIRED
     Route: 048
  12. FERINJECT [Suspect]
     Active Substance: FERRIC CARBOXYMALTOSE
     Indication: PRODUCT USED FOR UNKNOWN INDICATION
     Dosage: 1 DOSAGE FORMS,1 TOTAL
     Route: 042
     Dates: start: 20200124, end: 20200124
  13. PODOMEXEF [Concomitant]
     Active Substance: CEFPODOXIME PROXETIL
     Indication: PRODUCT USED FOR UNKNOWN INDICATION
     Dosage: 100 MILLIGRAM, 1 IN MORNING
     Route: 048
  14. CODEIN KNOLL [Concomitant]
     Active Substance: CODEINE PHOSPHATE
     Indication: PRODUCT USED FOR UNKNOWN INDICATION
     Dosage: 50 MILLIGRAM,  AS REQUIRED
     Route: 048
  15. XENALON [Concomitant]
     Active Substance: SPIRONOLACTONE
     Indication: PRODUCT USED FOR UNKNOWN INDICATION
     Dosage: 50 MG,1/2 IN AFTERNOON
     Route: 048

REACTIONS (17)
  - Heart valve incompetence [Recovering/Resolving]
  - Blood 1,25-dihydroxycholecalciferol decreased [Recovering/Resolving]
  - Electrolyte imbalance [Recovered/Resolved]
  - Respiratory acidosis [Recovering/Resolving]
  - Hypokalaemia [Recovering/Resolving]
  - General physical health deterioration [Recovering/Resolving]
  - Dyspnoea [Recovering/Resolving]
  - Urine phosphorus increased [Recovering/Resolving]
  - Hypophosphataemia [Recovering/Resolving]
  - Adverse drug reaction [Recovering/Resolving]
  - Asthenia [Recovering/Resolving]
  - Acute respiratory failure [Recovering/Resolving]
  - Pulmonary hypertension [Recovering/Resolving]
  - Insomnia [Recovering/Resolving]
  - Hypomagnesaemia [Recovering/Resolving]
  - Hypoventilation [Recovering/Resolving]
  - Respiratory disorder [Recovering/Resolving]

NARRATIVE: CASE EVENT DATE: 20200131
